FAERS Safety Report 5739677-7 (Version None)
Quarter: 2008Q2

REPORT INFORMATION
  Report Type: 
  Country: None (occurrence: None)
  Receive Date: 20080513
  Receipt Date: 20080408
  Transmission Date: 20081010
  Serious: Yes (Death, Other)
  Sender: FDA-Public Use
  Company Number: 2008S1005957

PATIENT
  Age: 44 Year
  Sex: Male

DRUGS (2)
  1. AMIODARONE HCL [Suspect]
     Indication: CONGESTIVE CARDIOMYOPATHY
     Dosage: 400 MG; X1, 200 MG; DAILY
     Dates: start: 19990801, end: 19990801
  2. AMIODARONE HCL [Suspect]
     Indication: CONGESTIVE CARDIOMYOPATHY
     Dosage: 400 MG; X1, 200 MG; DAILY
     Dates: start: 19990801

REACTIONS (16)
  - BLOOD PH INCREASED [None]
  - BODY MASS INDEX INCREASED [None]
  - CARDIAC FAILURE [None]
  - CARDIOMEGALY [None]
  - CHOLESTASIS [None]
  - DYSPNOEA EXERTIONAL [None]
  - HEPATIC CONGESTION [None]
  - HYPOTHYROIDISM [None]
  - HYPOXIA [None]
  - INTERSTITIAL LUNG DISEASE [None]
  - LUNG CONSOLIDATION [None]
  - MYOCARDIAL FIBROSIS [None]
  - PCO2 DECREASED [None]
  - PO2 DECREASED [None]
  - PRODUCTIVE COUGH [None]
  - PULMONARY TOXICITY [None]
